FAERS Safety Report 9506177 (Version 1)
Quarter: 2013Q1

REPORT INFORMATION
  Report Type: Spontaneous
  Country: US (occurrence: None)
  Receive Date: 20130301
  Receipt Date: 20130301
  Transmission Date: 20140127
  Serious: Yes (Hospitalization)
  Sender: FDA-Public Use
  Company Number: 351039

PATIENT
  Age: 67 Year
  Sex: Male
  Weight: 148.3 kg

DRUGS (2)
  1. NOVOLIN R (INSULIN HUMAN) SOLUTION FOR INJECTION, 100 IU/ML [Suspect]
     Indication: TYPE 2 DIABETES MELLITUS
     Route: 058
     Dates: end: 201111
  2. NOVOLIN N (INSULIN HUMAN) SUSPENSION FOR INJECTION, 100IU/ML [Suspect]
     Indication: TYPE 2 DIABETES MELLITUS
     Route: 058

REACTIONS (2)
  - Diabetic coma [None]
  - Blood glucose increased [None]
